FAERS Safety Report 4367622-8 (Version None)
Quarter: 2004Q2

REPORT INFORMATION
  Report Type: 
  Country: None (occurrence: None)
  Receive Date: 20040601
  Receipt Date: 20020516
  Transmission Date: 20050107
  Serious: Yes (Disabling, Other)
  Sender: FDA-Public Use
  Company Number: US-MERCK-0205USA02191

PATIENT
  Age: 46 Year
  Sex: Male
  Weight: 77 kg

DRUGS (2)
  1. VIOXX [Suspect]
     Indication: POST PROCEDURAL PAIN
     Route: 048
     Dates: start: 20010314, end: 20010729
  2. VIOXX [Suspect]
     Indication: SWELLING
     Route: 048
     Dates: start: 20010314, end: 20010729

REACTIONS (30)
  - ALANINE AMINOTRANSFERASE INCREASED [None]
  - AMNESIA [None]
  - AURA [None]
  - BACK PAIN [None]
  - BLOOD GLUCOSE INCREASED [None]
  - BRADYPHRENIA [None]
  - COGNITIVE DISORDER [None]
  - COMPRESSION FRACTURE [None]
  - CONDITION AGGRAVATED [None]
  - CONVULSION [None]
  - DEPRESSION [None]
  - ENCEPHALOMALACIA [None]
  - FEELING ABNORMAL [None]
  - HEADACHE [None]
  - INJURY [None]
  - INTERVERTEBRAL DISC DISPLACEMENT [None]
  - LOSS OF CONSCIOUSNESS [None]
  - LUMBAR VERTEBRAL FRACTURE [None]
  - NASAL SEPTUM DEVIATION [None]
  - NASAL TURBINATE HYPERTROPHY [None]
  - NOSE DEFORMITY [None]
  - OTITIS MEDIA [None]
  - PALPITATIONS [None]
  - PHOTOPSIA [None]
  - ROAD TRAFFIC ACCIDENT [None]
  - SEXUAL DYSFUNCTION [None]
  - SOMNOLENCE [None]
  - STRESS SYMPTOMS [None]
  - TREMOR [None]
  - WHITE BLOOD CELL COUNT INCREASED [None]
